FAERS Safety Report 5206386-2 (Version None)
Quarter: 2007Q1

REPORT INFORMATION
  Report Type: 
  Country: None (occurrence: None)
  Receive Date: 20070111
  Receipt Date: 20070102
  Transmission Date: 20070707
  Serious: Yes (Other)
  Sender: FDA-Public Use
  Company Number: US-PFIZER INC-2006145434

PATIENT
  Sex: Female

DRUGS (2)
  1. SOLU-MEDROL [Suspect]
  2. COPAXONE [Suspect]

REACTIONS (7)
  - ANGER [None]
  - BONE DISORDER [None]
  - CEREBRAL HAEMORRHAGE [None]
  - CHEST PAIN [None]
  - DEPRESSION [None]
  - HEADACHE [None]
  - WEIGHT INCREASED [None]
